FAERS Safety Report 4663296-7 (Version None)
Quarter: 2005Q2

REPORT INFORMATION
  Report Type: 
  Country: None (occurrence: None)
  Receive Date: 20050513
  Receipt Date: 20050504
  Transmission Date: 20051028
  Serious: Yes (Death)
  Sender: FDA-Public Use
  Company Number: 2005070432

PATIENT
  Sex: Male

DRUGS (22)
  1. ATORVASTATIN CALCIUM [Suspect]
     Indication: ILL-DEFINED DISORDER
     Dosage: (10 MG)
  2. LACTULOSE [Suspect]
     Indication: ILL-DEFINED DISORDER
  3. SPIRONOLACTONE [Suspect]
     Indication: ILL-DEFINED DISORDER
     Dosage: (50 MG)
  4. TEMAZEPAM [Suspect]
     Indication: ILL-DEFINED DISORDER
     Dosage: (10 MG , 1 - 2 NIGHTLY)
  5. DILTIAZEM [Suspect]
     Indication: ILL-DEFINED DISORDER
  6. ALBUTAMOL W/IPRATROPIUM (IPRATROPIUM, SALBUTAMOL) [Suspect]
     Indication: ILL-DEFINED DISORDER
  7. SALBUTAMOL (SALBUTAMOL) [Concomitant]
  8. ASPIRIN [Concomitant]
  9. BECLOMETHASONE DIPROPIONATE [Concomitant]
  10. FRUMIL (AMILORIDE HYDROCHLORIDE, FUROSEMIDE) [Concomitant]
  11. DEXAMETHASONE [Concomitant]
  12. DOTHIEPIN HYDROCHLORIDE [Concomitant]
  13. FUROSEMIDE [Concomitant]
  14. GAVISCON [Concomitant]
  15. LANSOPRAZOLE [Concomitant]
  16. METOCLOPRAMIDE [Concomitant]
  17. GLYCERYL TRINITRATE (GLYCERYL TRINITRATE) [Concomitant]
  18. LEVOMEPROMAZINE (LEVOMEPROMAZINE) [Concomitant]
  19. OXYCODONE (OXYCODONE) [Concomitant]
  20. OXYGEN (OXYGEN) [Concomitant]
  21. SYMBICORT TURBUHALER ^DRACO^ (BUDESONIDE) [Concomitant]
  22. TIOTROPIUM BROMIDE (TIOTROPIUM BROMIDE) [Concomitant]

REACTIONS (1)
  - LUNG NEOPLASM MALIGNANT [None]
